FAERS Safety Report 9693573 (Version 1)
Quarter: 2013Q4

REPORT INFORMATION
  Report Type: Spontaneous
  Country: US (occurrence: US)
  Receive Date: 20131118
  Receipt Date: 20131118
  Transmission Date: 20140711
  Serious: Yes (Other)
  Sender: FDA-Public Use
  Company Number: US-ROXANE LABORATORIES, INC.-2013-RO-01827RO

PATIENT
  Sex: 0

DRUGS (1)
  1. QUETIAPINE FUMARATE [Suspect]

REACTIONS (2)
  - Overdose [Unknown]
  - Respiratory depression [Unknown]
